FAERS Safety Report 5916081-X (Version None)
Quarter: 2008Q4

REPORT INFORMATION
  Report Type: 
  Country: None (occurrence: None)
  Receive Date: 20081013
  Receipt Date: 20081003
  Transmission Date: 20090506
  Serious: Yes (Other)
  Sender: FDA-Public Use
  Company Number: GB-ASTRAZENECA-2008GB01405

PATIENT
  Age: 328 Month
  Sex: Male
  Weight: 90 kg

DRUGS (1)
  1. XYLOCAINE W/ EPINEPHRINE [Suspect]
     Indication: ANAESTHESIA
     Route: 058
     Dates: start: 20080702, end: 20080701

REACTIONS (2)
  - BETA HAEMOLYTIC STREPTOCOCCAL INFECTION [None]
  - CELLULITIS [None]
